FAERS Safety Report 20059296 (Version 1)
Quarter: 2021Q4

REPORT INFORMATION
  Report Type: Spontaneous
  Country: US (occurrence: US)
  Receive Date: 20211111
  Receipt Date: 20211111
  Transmission Date: 20220303
  Serious: No
  Sender: FDA-Public Use
  Company Number: US-Fresenius Medical Care Renal Therapies Group-FMC-2109-001466

PATIENT
  Sex: Male

DRUGS (1)
  1. DELFLEX WITH DEXTROSE 1.5% LOW MAGNESIUM LOW CALCIUM [Suspect]
     Active Substance: CALCIUM CHLORIDE\DEXTROSE\MAGNESIUM CHLORIDE\SODIUM CHLORIDE\SODIUM LACTATE
     Indication: End stage renal disease
     Dosage: TTV 8000 ML, 4 FILLS, FV 2000 ML, LFV 0 ML, DWT 01 HOUR 38 MINUTES, TST 8 HOURS.
     Route: 033

REACTIONS (2)
  - Dyspnoea [Unknown]
  - Abdominal distension [Unknown]
